FAERS Safety Report 7766920-5 (Version None)
Quarter: 2011Q3

REPORT INFORMATION
  Report Type: 
  Country: None (occurrence: None)
  Receive Date: 20110922
  Receipt Date: 20110723
  Transmission Date: 20111222
  Serious: Yes (Other)
  Sender: FDA-Public Use
  Company Number: ES-UCBSA-038336

PATIENT

DRUGS (4)
  1. ACFOL [Suspect]
  2. DEXAMETHASONE [Suspect]
  3. PHENYTOIN [Suspect]
  4. KEPPRA [Suspect]

REACTIONS (3)
  - CONVULSION [None]
  - TOXIC EPIDERMAL NECROLYSIS [None]
  - RESPIRATORY DISTRESS [None]
